FAERS Safety Report 10789673 (Version 1)
Quarter: 2015Q1

REPORT INFORMATION
  Report Type: Spontaneous
  Country: US (occurrence: None)
  Receive Date: 20150211
  Receipt Date: 20150211
  Transmission Date: 20150721
  Serious: Yes (Other)
  Sender: FDA-Public Use
  Company Number: None

PATIENT
  Age: 37 Year
  Sex: Male
  Weight: 77.11 kg

DRUGS (1)
  1. SERTRALINE HCL 25 MG NORTHSTAR RX LLC [Suspect]
     Active Substance: SERTRALINE HYDROCHLORIDE
     Indication: ANXIETY
     Route: 048
     Dates: start: 20140202, end: 20150204

REACTIONS (7)
  - Vertigo [None]
  - Mental impairment [None]
  - Feeling abnormal [None]
  - Dizziness [None]
  - Disturbance in attention [None]
  - Nausea [None]
  - Stress at work [None]

NARRATIVE: CASE EVENT DATE: 20150206
